FAERS Safety Report 21766882 (Version 1)
Quarter: 2022Q4

REPORT INFORMATION
  Report Type: Spontaneous
  Country: US (occurrence: US)
  Receive Date: 20221222
  Receipt Date: 20221222
  Transmission Date: 20230113
  Serious: Yes (Life-Threatening, Hospitalization, Other)
  Sender: FDA-Public Use
  Company Number: US-PFIZER INC-202201374988

PATIENT
  Age: 45 Year
  Sex: Female

DRUGS (4)
  1. RITUXIMAB [Suspect]
     Active Substance: RITUXIMAB
     Indication: Epstein-Barr virus associated lymphoproliferative disorder
     Dosage: UNK
  2. RITUXIMAB [Suspect]
     Active Substance: RITUXIMAB
     Indication: Haemophagocytic lymphohistiocytosis
  3. DEXAMETHASONE SODIUM PHOSPHATE [Suspect]
     Active Substance: DEXAMETHASONE SODIUM PHOSPHATE
     Indication: Epstein-Barr virus associated lymphoproliferative disorder
     Dosage: UNK
  4. DEXAMETHASONE SODIUM PHOSPHATE [Suspect]
     Active Substance: DEXAMETHASONE SODIUM PHOSPHATE
     Indication: Haemophagocytic lymphohistiocytosis

REACTIONS (10)
  - Neuropathy peripheral [Unknown]
  - Staphylococcal bacteraemia [Unknown]
  - Pneumonia aspiration [Unknown]
  - Pneumocystis jirovecii pneumonia [Unknown]
  - Febrile neutropenia [Unknown]
  - Chronic respiratory failure [Unknown]
  - Epstein-Barr virus infection reactivation [Unknown]
  - Bacterial infection [Unknown]
  - Urinary tract infection [Unknown]
  - Vocal cord dysfunction [Unknown]
